FAERS Safety Report 9848601 (Version 2)
Quarter: 2014Q1

REPORT INFORMATION
  Report Type: Spontaneous
  Country: BR (occurrence: BR)
  Receive Date: 20140128
  Receipt Date: 20140218
  Transmission Date: 20141002
  Serious: Yes (Other)
  Sender: FDA-Public Use
  Company Number: BR-JNJFOC-20140113771

PATIENT
  Age: 65 Year
  Sex: Female

DRUGS (1)
  1. ULTRACET [Suspect]
     Indication: BACK PAIN
     Dosage: 1 IN I DAY
     Route: 048

REACTIONS (5)
  - Infarction [Unknown]
  - Presyncope [Unknown]
  - Headache [Unknown]
  - Malaise [Unknown]
  - Back pain [Unknown]
